FAERS Safety Report 8937070 (Version 1)
Quarter: 2012Q4

REPORT INFORMATION
  Report Type: 
  Country: US (occurrence: US)
  Receive Date: 20121129
  Receipt Date: 20121129
  Transmission Date: 20130627
  Serious: Yes (Hospitalization, Other)
  Sender: FDA-Public Use
  Company Number: PHEH2012US023136

PATIENT
  Sex: Female
  Weight: 53.97 kg

DRUGS (7)
  1. ZOMETA [Suspect]
  2. GEMZAR [Concomitant]
     Dosage: 1000 mg, weekly
  3. XELODA [Concomitant]
  4. LOVENOX [Concomitant]
     Dosage: 80 mcg, QD
  5. IXEMPRA [Concomitant]
  6. ZOLADEX [Concomitant]
  7. AROMASIN [Concomitant]

REACTIONS (14)
  - Disease progression [Unknown]
  - Pneumothorax [Unknown]
  - Adenocarcinoma [Unknown]
  - Inferior vena caval occlusion [Unknown]
  - Vaginal haemorrhage [Unknown]
  - Deep vein thrombosis [Unknown]
  - Hepatic lesion [Unknown]
  - Bone lesion [Unknown]
  - Decreased appetite [Unknown]
  - Anxiety [Unknown]
  - Neutropenia [Unknown]
  - Back pain [Recovered/Resolved]
  - Erythema [Unknown]
  - Thrombocytopenia [Unknown]
